FAERS Safety Report 6164977-9 (Version None)
Quarter: 2009Q2

REPORT INFORMATION
  Report Type: 
  Country: None (occurrence: None)
  Receive Date: 20090423
  Receipt Date: 20090309
  Transmission Date: 20091009
  Serious: No
  Sender: FDA-Public Use
  Company Number: US-BAYER-200915052NA

PATIENT
  Age: 34 Year
  Sex: Female

DRUGS (1)
  1. YAZ [Suspect]
     Indication: CONTRACEPTION
     Route: 048
     Dates: start: 20090223, end: 20090302

REACTIONS (3)
  - MIGRAINE [None]
  - NAUSEA [None]
  - PALPITATIONS [None]
